FAERS Safety Report 10248897 (Version 1)
Quarter: 2014Q2

REPORT INFORMATION
  Report Type: Spontaneous
  Country: US (occurrence: None)
  Receive Date: 20140618
  Receipt Date: 20140618
  Transmission Date: 20141212
  Serious: Yes (Other)
  Sender: FDA-Public Use
  Company Number: None

PATIENT
  Sex: Female
  Weight: 90.72 kg

DRUGS (2)
  1. BUPROPION HCL 150 MG [Suspect]
     Indication: DYSTHYMIC DISORDER
     Dosage: 150 MG PO QAM
     Route: 048
  2. BUPROPION HCL [Suspect]
     Dosage: 300 MG PO QAM
     Route: 048

REACTIONS (4)
  - Depressed mood [None]
  - Therapeutic response changed [None]
  - Product substitution issue [None]
  - No therapeutic response [None]
